FAERS Safety Report 9299338 (Version 1)
Quarter: 2013Q2

REPORT INFORMATION
  Report Type: Spontaneous
  Country: BR (occurrence: BR)
  Receive Date: 20130520
  Receipt Date: 20130520
  Transmission Date: 20140414
  Serious: Yes (Other)
  Sender: FDA-Public Use
  Company Number: BR-PFIZER INC-2013150518

PATIENT
  Age: 70 Year
  Sex: Female
  Weight: 82 kg

DRUGS (2)
  1. XALATAN [Suspect]
     Indication: INTRAOCULAR PRESSURE INCREASED
     Dosage: 3 UG (TWO DROPS), 1X/DAY
     Route: 047
     Dates: start: 2009, end: 2012
  2. XALATAN [Suspect]
     Indication: CATARACT
     Dosage: UNK
     Dates: start: 2013

REACTIONS (3)
  - Cataract [Unknown]
  - Cataract [Unknown]
  - Intraocular pressure increased [Unknown]
